FAERS Safety Report 7228072-X (Version None)
Quarter: 2011Q1

REPORT INFORMATION
  Report Type: 
  Country: None (occurrence: None)
  Receive Date: 20110114
  Receipt Date: 20110112
  Transmission Date: 20110831
  Serious: Yes (Other)
  Sender: FDA-Public Use
  Company Number: ES-PFIZER INC-2011007324

PATIENT
  Age: 74 Year
  Sex: Female

DRUGS (10)
  1. NUCLEO C.M.P. FORTE [Concomitant]
     Dosage: UNK
  2. CRESTOR [Concomitant]
     Indication: HYPERCHOLESTEROLAEMIA
     Dosage: UNK
  3. LORAZEPAM [Concomitant]
     Dosage: UNK
  4. NEOBRUFEN [Concomitant]
     Dosage: UNK
  5. LYRICA [Suspect]
     Indication: NEURALGIA
     Dosage: UNK
     Route: 048
     Dates: end: 20100101
  6. ACTONEL [Concomitant]
     Indication: OSTEOPOROSIS
     Dosage: UNK
  7. EVITEX A+E FUERTE [Concomitant]
     Dosage: UNK
  8. ADIRO [Concomitant]
     Dosage: UNK
  9. NORVASC [Concomitant]
     Indication: HYPERTENSION
     Dosage: UNK
  10. ACETAMINOPHEN [Concomitant]
     Dosage: UNK

REACTIONS (1)
  - GLAUCOMA [None]
